FAERS Safety Report 7570542-9 (Version None)
Quarter: 2011Q2

REPORT INFORMATION
  Report Type: 
  Country: None (occurrence: None)
  Receive Date: 20110624
  Receipt Date: 20110330
  Transmission Date: 20111010
  Serious: No
  Sender: FDA-Public Use
  Company Number: US-ALLERGAN-1104489US

PATIENT
  Age: 53 Year
  Sex: Female

DRUGS (3)
  1. LATISSE [Suspect]
     Indication: PRODUCT USED FOR UNKNOWN INDICATION
     Dosage: UNK
     Dates: start: 20110225, end: 20110325
  2. BOTOX COSMETIC [Suspect]
     Indication: SKIN WRINKLING
     Dosage: 40 UNITS, SINGLE
     Route: 030
     Dates: start: 20110318, end: 20110318
  3. JUVEDERM [Concomitant]
     Indication: SKIN WRINKLING
     Dosage: UNK
     Dates: start: 20110318, end: 20110318

REACTIONS (1)
  - EYELID OEDEMA [None]
